FAERS Safety Report 5193920-4 (Version None)
Quarter: 2006Q4

REPORT INFORMATION
  Report Type: 
  Country: None (occurrence: None)
  Receive Date: 20061222
  Receipt Date: 20061211
  Transmission Date: 20070319
  Serious: Yes (Other)
  Sender: FDA-Public Use
  Company Number: 2006123973

PATIENT
  Age: 48 Year
  Sex: Male
  Weight: 86.637 kg

DRUGS (5)
  1. CAMPTOSAR [Suspect]
     Indication: METASTASES TO BONE
     Dosage: 85 MG/M2 (130 MG, 1 IN 1 CYCLICAL), INTRAVENOUS
     Route: 042
     Dates: start: 20060522
  2. CAMPTOSAR [Suspect]
     Indication: METASTASES TO LIVER
     Dosage: 85 MG/M2 (130 MG, 1 IN 1 CYCLICAL), INTRAVENOUS
     Route: 042
     Dates: start: 20060522
  3. CAMPTOSAR [Suspect]
     Indication: OESOPHAGEAL CARCINOMA
     Dosage: 85 MG/M2 (130 MG, 1 IN 1 CYCLICAL), INTRAVENOUS
     Route: 042
     Dates: start: 20060522
  4. CISPLATIN [Concomitant]
  5. ATROPINE [Concomitant]

REACTIONS (10)
  - BLOOD ALKALINE PHOSPHATASE INCREASED [None]
  - BLOOD POTASSIUM DECREASED [None]
  - BODY TEMPERATURE DECREASED [None]
  - HAEMATOCRIT DECREASED [None]
  - HAEMOGLOBIN DECREASED [None]
  - INCORRECT DRUG ADMINISTRATION RATE [None]
  - NEUTROPENIA [None]
  - PLATELET COUNT DECREASED [None]
  - WEIGHT INCREASED [None]
  - WHITE BLOOD CELL COUNT DECREASED [None]
